FAERS Safety Report 18678024 (Version 6)
Quarter: 2022Q1

REPORT INFORMATION
  Report Type: Spontaneous
  Country: LT (occurrence: None)
  Receive Date: 20201229
  Receipt Date: 20220301
  Transmission Date: 20220423
  Serious: Yes (Life-Threatening, Hospitalization, Other)
  Sender: FDA-Public Use
  Company Number: 2020SF75018

PATIENT
  Age: 41 Year
  Sex: Female
  Weight: 90 kg

DRUGS (6)
  1. METOPROLOL [Suspect]
     Active Substance: METOPROLOL
     Indication: Completed suicide
     Dosage: 10 TABLETS
     Route: 048
     Dates: start: 20201130, end: 20201130
  2. METOPROLOL [Suspect]
     Active Substance: METOPROLOL
     Indication: Product used for unknown indication
     Dosage: 10 TABLETS
     Route: 048
     Dates: start: 20201130, end: 20201130
  3. QUETIAPINE FUMARATE [Suspect]
     Active Substance: QUETIAPINE FUMARATE
     Indication: Completed suicide
     Dosage: 10 TABLETS
     Route: 048
     Dates: start: 20201130, end: 20201130
  4. QUETIAPINE FUMARATE [Suspect]
     Active Substance: QUETIAPINE FUMARATE
     Indication: Product used for unknown indication
     Dosage: 10 TABLETS
     Route: 048
     Dates: start: 20201130, end: 20201130
  5. BISOPROLOL FUMARATE [Suspect]
     Active Substance: BISOPROLOL FUMARATE
     Indication: Completed suicide
     Dosage: 10 TABLETS
     Route: 048
     Dates: start: 20201130, end: 20201130
  6. BISOPROLOL FUMARATE [Suspect]
     Active Substance: BISOPROLOL FUMARATE
     Indication: Product used for unknown indication
     Dosage: 10 TABLETS
     Route: 048
     Dates: start: 20201130, end: 20201130

REACTIONS (3)
  - Suicide attempt [Recovering/Resolving]
  - Hypotension [Recovering/Resolving]
  - Off label use [Recovering/Resolving]

NARRATIVE: CASE EVENT DATE: 20201130
